FAERS Safety Report 20564204 (Version 4)
Quarter: 2023Q2

REPORT INFORMATION
  Report Type: Spontaneous
  Country: US (occurrence: US)
  Receive Date: 20220308
  Receipt Date: 20230606
  Transmission Date: 20230722
  Serious: Yes (Disabling, Other)
  Sender: FDA-Public Use
  Company Number: US-ORGANON-O2203USA000477

PATIENT
  Sex: Female
  Weight: 104.31 kg

DRUGS (2)
  1. SINGULAIR [Suspect]
     Active Substance: MONTELUKAST SODIUM
     Indication: Hypersensitivity
     Dosage: 10 MILLIGRAM, DAILY
     Route: 048
     Dates: start: 2010, end: 2020
  2. TELMISARTAN AND HYDROCHLOROTHIAZIDE [Concomitant]
     Active Substance: HYDROCHLOROTHIAZIDE\TELMISARTAN
     Indication: Hypertension
     Dosage: UNK

REACTIONS (11)
  - Neuropsychiatric symptoms [Not Recovered/Not Resolved]
  - Migraine [Not Recovered/Not Resolved]
  - Major depression [Recovering/Resolving]
  - Post-traumatic stress disorder [Not Recovered/Not Resolved]
  - Bipolar I disorder [Unknown]
  - Anxiety [Not Recovered/Not Resolved]
  - Rash erythematous [Not Recovered/Not Resolved]
  - Trichotillomania [Unknown]
  - Binge eating [Recovering/Resolving]
  - Post-traumatic stress disorder [Unknown]
  - Insomnia [Recovering/Resolving]

NARRATIVE: CASE EVENT DATE: 20150101
